FAERS Safety Report 5569586-8 (Version None)
Quarter: 2007Q4

REPORT INFORMATION
  Report Type: 
  Country: None (occurrence: None)
  Receive Date: 20071220
  Receipt Date: 20071206
  Transmission Date: 20080405
  Serious: Yes (Life-Threatening, Hospitalization)
  Sender: FDA-Public Use
  Company Number: GB-RANBAXY-2007RR-11978

PATIENT

DRUGS (18)
  1. FENOFIBRATE 267MG CAPSULES [Suspect]
     Indication: HYPERLIPIDAEMIA
     Dosage: 267 MG, QD
     Route: 048
     Dates: start: 20070911
  2. SIMVASTATIN 20MG TABLETS [Suspect]
     Indication: HYPERLIPIDAEMIA
     Dosage: 20 MG, QD
     Route: 048
     Dates: start: 20071016, end: 20071116
  3. BECLOMETHASONE DIPROPIONATE [Concomitant]
     Dosage: 100 UG, BID
     Route: 055
  4. CITALOPRAM 20MG TABLET [Concomitant]
     Dosage: 20 MG, QD
  5. GABAPENTIN BASICS B 600MG FILMTABLETTEN [Concomitant]
     Dosage: 900 MG, BID
  6. GLUCOSE [Concomitant]
     Dosage: UNK
     Route: 048
  7. INFLUENZA VIRUS [Concomitant]
     Dosage: 0.5 DF, UNK
     Dates: start: 20071024, end: 20071024
  8. INSULATARD [Concomitant]
     Dosage: 100 DF, UNK
  9. IPRATROPIUM BROMIDE [Concomitant]
     Dosage: 20 UG, UNK
     Route: 055
  10. LANSOPRAZOLE 15 MG GASTRO-RESISTANT CAPSULES [Concomitant]
     Dosage: 15 MG, QD
  11. LISINOPRIL [Concomitant]
     Dosage: 5 MG, QD
  12. METFORMIN 500MG TABLETS [Concomitant]
     Dosage: 1 G, BID
  13. NOVORAPID [Concomitant]
     Dosage: 100 DF, UNK
  14. OLIVE OIL [Concomitant]
     Dosage: 2 DF, QID
  15. ACETAMINOPHEN [Concomitant]
     Dosage: UNK
  16. PIOGLITAZONE [Concomitant]
     Dosage: 30 MG, QD
  17. ALBUTEROL [Concomitant]
     Dosage: 100 UG, PRN
     Route: 055
  18. TRAMADOL HCL [Concomitant]
     Dosage: 200 MG, BID

REACTIONS (3)
  - DRUG INTERACTION [None]
  - INFLUENZA LIKE ILLNESS [None]
  - JOINT SWELLING [None]
